FAERS Safety Report 25205550 (Version 2)
Quarter: 2025Q2

REPORT INFORMATION
  Report Type: Spontaneous
  Country: IT (occurrence: IT)
  Receive Date: 20250417
  Receipt Date: 20250520
  Transmission Date: 20250716
  Serious: Yes (Hospitalization, Other)
  Sender: RANBAXY
  Company Number: IT-SUN PHARMACEUTICAL INDUSTRIES LTD-2025R1-503526

PATIENT
  Age: 60 Year
  Sex: Female

DRUGS (1)
  1. PHENOBARBITAL [Suspect]
     Active Substance: PHENOBARBITAL
     Indication: Epilepsy
     Route: 065

REACTIONS (5)
  - Pneumonitis [Recovering/Resolving]
  - Overdose [Unknown]
  - Stupor [Recovering/Resolving]
  - Hypotension [Recovering/Resolving]
  - Alanine aminotransferase increased [Recovering/Resolving]
